FAERS Safety Report 15644511 (Version 2)
Quarter: 2018Q4

REPORT INFORMATION
  Report Type: Spontaneous
  Country: US (occurrence: US)
  Receive Date: 20181121
  Receipt Date: 20181129
  Transmission Date: 20190205
  Serious: No
  Sender: FDA-Public Use
  Company Number: US-GLAXOSMITHKLINE-US2018207299

PATIENT

DRUGS (2)
  1. FLONASE ALLERGY RELIEF [Suspect]
     Active Substance: FLUTICASONE PROPIONATE
     Indication: MIGRAINE
  2. FLONASE ALLERGY RELIEF [Suspect]
     Active Substance: FLUTICASONE PROPIONATE
     Indication: SEASONAL ALLERGY
     Dosage: UNK

REACTIONS (5)
  - Product use in unapproved indication [Unknown]
  - Incorrect dose administered [Unknown]
  - Drug effective for unapproved indication [Unknown]
  - Device operational issue [Unknown]
  - Product complaint [Unknown]
